FAERS Safety Report 10213725 (Version 1)
Quarter: 2014Q2

REPORT INFORMATION
  Report Type: Spontaneous
  Country: US (occurrence: None)
  Receive Date: 20140602
  Receipt Date: 20140602
  Transmission Date: 20141212
  Serious: No
  Sender: FDA-Public Use
  Company Number: None

PATIENT
  Age: 70 Year
  Sex: Male
  Weight: 78.02 kg

DRUGS (1)
  1. VIAGRA [Suspect]
     Indication: ERECTILE DYSFUNCTION
     Dosage: 1 TAB 1 HOUR BEFORE RELA TAKEN BY MOUTH
     Route: 048
     Dates: start: 20140523

REACTIONS (2)
  - Abdominal discomfort [None]
  - Haemorrhage [None]
